FAERS Safety Report 10357249 (Version 1)
Quarter: 2014Q3

REPORT INFORMATION
  Report Type: Spontaneous
  Country: US (occurrence: None)
  Receive Date: 20140730
  Receipt Date: 20140730
  Transmission Date: 20150326
  Serious: Yes (Other)
  Sender: FDA-Public Use
  Company Number: None

PATIENT
  Age: 07 Year
  Sex: Male
  Weight: 45.36 kg

DRUGS (1)
  1. CETIRIZINE [Suspect]
     Active Substance: CETIRIZINE HYDROCHLORIDE
     Indication: MULTIPLE ALLERGIES
     Dosage: TAKE ONE TEASPOON BY MOUTH TWO TIMES A DAY
     Route: 048
     Dates: start: 20140428, end: 20140609

REACTIONS (1)
  - Urine output decreased [None]

NARRATIVE: CASE EVENT DATE: 20140609
